FAERS Safety Report 4749241-4 (Version None)
Quarter: 2005Q3

REPORT INFORMATION
  Report Type: 
  Country: None (occurrence: None)
  Receive Date: 20050817
  Receipt Date: 20050804
  Transmission Date: 20060218
  Serious: Yes (Hospitalization)
  Sender: FDA-Public Use
  Company Number: HQWYE914124MAY05

PATIENT
  Age: 53 Year
  Sex: Female

DRUGS (3)
  1. RAPAMUNE [Suspect]
     Indication: IMMUNOSUPPRESSION
     Dosage: 3 MG 1X PER 1 DAY ORAL
     Route: 048
     Dates: start: 20040301, end: 20050721
  2. PREDNISONE [Suspect]
     Indication: IMMUNOSUPPRESSION
     Dosage: 20 MG 1X PER 1 DAY ORAL
     Route: 048
     Dates: start: 20050427
  3. FUROSEMIDE [Concomitant]

REACTIONS (4)
  - BLOOD CHOLESTEROL INCREASED [None]
  - GLUCOSE URINE PRESENT [None]
  - HYPERGLYCAEMIA [None]
  - HYPERTRIGLYCERIDAEMIA [None]
